FAERS Safety Report 25986768 (Version 1)
Quarter: 2025Q4

REPORT INFORMATION
  Report Type: Report from Study
  Country: US (occurrence: US)
  Receive Date: 20251102
  Receipt Date: 20251102
  Transmission Date: 20260117
  Serious: Yes (Life-Threatening, Hospitalization)
  Sender: SANOFI AVENTIS
  Company Number: US-SA-2025SA306568

PATIENT
  Age: 69 Year
  Sex: Female

DRUGS (8)
  1. CAPLACIZUMAB-YHDP [Suspect]
     Active Substance: CAPLACIZUMAB-YHDP
     Indication: Immune thrombocytopenia
     Dosage: 11 DF, QD
     Route: 058
     Dates: start: 20251010
  2. CAPLACIZUMAB-YHDP [Suspect]
     Active Substance: CAPLACIZUMAB-YHDP
     Indication: Immune thrombocytopenia
     Dosage: 11 DF, QD
     Route: 058
     Dates: start: 20251010
  3. CAPLACIZUMAB-YHDP [Suspect]
     Active Substance: CAPLACIZUMAB-YHDP
     Indication: Immune thrombocytopenia
     Dosage: 11 DF, QD
     Route: 058
     Dates: start: 20251010
  4. CAPLACIZUMAB-YHDP [Suspect]
     Active Substance: CAPLACIZUMAB-YHDP
     Indication: Immune thrombocytopenia
     Dosage: 11 DF, QD
     Route: 058
     Dates: start: 20251010
  5. CAPLACIZUMAB-YHDP [Suspect]
     Active Substance: CAPLACIZUMAB-YHDP
     Indication: Thrombotic thrombocytopenic purpura
  6. CAPLACIZUMAB-YHDP [Suspect]
     Active Substance: CAPLACIZUMAB-YHDP
     Indication: Thrombotic thrombocytopenic purpura
  7. CAPLACIZUMAB-YHDP [Suspect]
     Active Substance: CAPLACIZUMAB-YHDP
     Indication: Thrombotic thrombocytopenic purpura
  8. CAPLACIZUMAB-YHDP [Suspect]
     Active Substance: CAPLACIZUMAB-YHDP
     Indication: Thrombotic thrombocytopenic purpura

REACTIONS (2)
  - Aphasia [Recovering/Resolving]
  - Staring [Unknown]

NARRATIVE: CASE EVENT DATE: 20251022
